FAERS Safety Report 19578108 (Version 2)
Quarter: 2021Q3

REPORT INFORMATION
  Report Type: Report from Study
  Country: FR (occurrence: FR)
  Receive Date: 20210719
  Receipt Date: 20210721
  Transmission Date: 20211014
  Serious: Yes (Death, Other)
  Sender: FDA-Public Use
  Company Number: FR-GILEAD-2021-0540938

PATIENT
  Sex: Female

DRUGS (1)
  1. SACITUZUMAB GOVITECAN. [Suspect]
     Active Substance: SACITUZUMAB GOVITECAN
     Indication: PRODUCT USED FOR UNKNOWN INDICATION
     Dosage: UNK
     Route: 065

REACTIONS (3)
  - Device related infection [Unknown]
  - Septic shock [Unknown]
  - Death [Fatal]

NARRATIVE: CASE EVENT DATE: 20210713
